FAERS Safety Report 9025258 (Version 1)
Quarter: 2013Q1

REPORT INFORMATION
  Report Type: Spontaneous
  Country: US (occurrence: US)
  Receive Date: 20130122
  Receipt Date: 20130122
  Transmission Date: 20140127
  Serious: Yes (Other)
  Sender: FDA-Public Use
  Company Number: US-WATSON-2011-18343

PATIENT
  Age: 77 Year
  Sex: Male
  Weight: 82 kg

DRUGS (3)
  1. ANDRODERM (WATSON LABORATORIES) [Suspect]
     Indication: BLOOD TESTOSTERONE DECREASED
     Dosage: 1 PATCH DAILY
     Route: 062
     Dates: end: 201211
  2. ANDRODERM (WATSON LABORATORIES) [Suspect]
     Dosage: 1 PATCH DAILY
     Route: 062
     Dates: start: 20111018
  3. ANDRODERM (WATSON LABORATORIES) [Suspect]
     Indication: BLOOD TESTOSTERONE DECREASED
     Dosage: 1 PATCH DAILY
     Route: 062
     Dates: start: 2009, end: 20111018

REACTIONS (7)
  - Stevens-Johnson syndrome [Not Recovered/Not Resolved]
  - Erythema multiforme [Not Recovered/Not Resolved]
  - Erythema [Not Recovered/Not Resolved]
  - Photosensitivity reaction [Not Recovered/Not Resolved]
  - Porokeratosis [Not Recovered/Not Resolved]
  - Blood testosterone decreased [Not Recovered/Not Resolved]
  - Drug ineffective [Not Recovered/Not Resolved]
